FAERS Safety Report 14758660 (Version 1)
Quarter: 2018Q2

REPORT INFORMATION
  Report Type: Spontaneous
  Country: US (occurrence: US)
  Receive Date: 20180409
  Receipt Date: 20180409
  Transmission Date: 20180711
  Serious: No
  Sender: FDA-Public Use
  Company Number: None

PATIENT
  Age: 84 Year
  Sex: Female
  Weight: 76.5 kg

DRUGS (15)
  1. IMBRUVICA [Suspect]
     Active Substance: IBRUTINIB
     Indication: CHRONIC LYMPHOCYTIC LEUKAEMIA
     Dosage: ?          QUANTITY:3 CAPSULE(S);?
     Route: 048
  2. METFORMIN [Concomitant]
     Active Substance: METFORMIN HYDROCHLORIDE
  3. RABEPRAZOLE [Concomitant]
     Active Substance: RABEPRAZOLE
  4. MULTIVITAMIN [Concomitant]
     Active Substance: VITAMINS
  5. VITAMIN E [Concomitant]
     Active Substance: .ALPHA.-TOCOPHEROL
  6. VITAMIN D [Concomitant]
     Active Substance: CHOLECALCIFEROL
  7. JANUVIA [Concomitant]
     Active Substance: SITAGLIPTIN PHOSPHATE
  8. SYNTHROID [Concomitant]
     Active Substance: LEVOTHYROXINE SODIUM
  9. ASPIRIN. [Concomitant]
     Active Substance: ASPIRIN
  10. VIT. B12 [Concomitant]
  11. AMLODIPLINE [Concomitant]
  12. CELEBREX [Concomitant]
     Active Substance: CELECOXIB
  13. DESLORADIN [Concomitant]
  14. VALSARTAN. [Concomitant]
     Active Substance: VALSARTAN
  15. VITRON-C [Concomitant]
     Active Substance: ASCORBIC ACID\IRON

REACTIONS (2)
  - Contusion [None]
  - Stomatitis [None]

NARRATIVE: CASE EVENT DATE: 20160408
